FAERS Safety Report 5938655-2 (Version None)
Quarter: 2008Q4

REPORT INFORMATION
  Report Type: 
  Country: None (occurrence: None)
  Receive Date: 20081103
  Receipt Date: 20081022
  Transmission Date: 20090506
  Serious: Yes (Death, Hospitalization)
  Sender: FDA-Public Use
  Company Number: CL-ROCHE-592888

PATIENT
  Age: 73 Year
  Sex: Female
  Weight: 57 kg

DRUGS (3)
  1. XELODA [Suspect]
     Indication: COLON CANCER
     Route: 048
     Dates: start: 20080901
  2. ENALAPRIL MALEATE [Concomitant]
     Indication: HYPERTENSION
     Route: 048
  3. OXALIPLATIN [Concomitant]
     Indication: COLON CANCER
     Dates: start: 20080901

REACTIONS (5)
  - DEHYDRATION [None]
  - DIARRHOEA [None]
  - LETHARGY [None]
  - NAUSEA [None]
  - VOMITING [None]
